FAERS Safety Report 4261864-8 (Version None)
Quarter: 2004Q1

REPORT INFORMATION
  Report Type: 
  Country: None (occurrence: None)
  Receive Date: 20040102
  Receipt Date: 20031210
  Transmission Date: 20041129
  Serious: Yes (Other)
  Sender: FDA-Public Use
  Company Number: PHBS2003JP13963

PATIENT
  Age: 30 Year
  Sex: Male

DRUGS (2)
  1. CYCLOSPORINE [Suspect]
     Indication: PSORIASIS
     Dosage: 5 MG/KG/D
     Route: 048
  2. CYCLOSPORINE [Suspect]
     Dosage: 3 MG/KG/D
     Route: 048

REACTIONS (4)
  - BIOPSY KIDNEY ABNORMAL [None]
  - BLOOD CREATININE INCREASED [None]
  - RENAL HYPERTENSION [None]
  - RENAL INTERSTITIAL FIBROSIS [None]
